FAERS Safety Report 6499896-1 (Version None)
Quarter: 2009Q4

REPORT INFORMATION
  Report Type: 
  Country: None (occurrence: None)
  Receive Date: 20091214
  Receipt Date: 20091214
  Transmission Date: 20100525
  Serious: Yes (Other)
  Sender: FDA-Public Use
  Company Number: None

PATIENT
  Sex: Female
  Weight: 52.5 kg

DRUGS (1)
  1. OPTIRAY 320 [Suspect]
     Indication: SCAN WITH CONTRAST
     Dates: start: 20091030, end: 20091030

REACTIONS (2)
  - CHEST PAIN [None]
  - PRURITUS [None]
